FAERS Safety Report 18512552 (Version 1)
Quarter: 2020Q4

REPORT INFORMATION
  Report Type: Report from Study
  Country: FR (occurrence: FR)
  Receive Date: 20201117
  Receipt Date: 20201117
  Transmission Date: 20210114
  Serious: Yes (Life-Threatening, Other)
  Sender: FDA-Public Use
  Company Number: FR-GILEAD-2020-0495755

PATIENT
  Age: 56 Year
  Sex: Female
  Weight: 80 kg

DRUGS (13)
  1. LOVENOX [Concomitant]
     Active Substance: ENOXAPARIN SODIUM
     Indication: THROMBOSIS PROPHYLAXIS
     Dosage: 0.8 ML, QD
     Route: 058
     Dates: start: 20200907
  2. LOXEN [LOXOPROFEN SODIUM] [Concomitant]
     Active Substance: LOXOPROFEN SODIUM
     Dosage: UNK
     Dates: start: 20200908
  3. SULFENTANYL [Concomitant]
     Active Substance: SUFENTANIL
     Indication: MECHANICAL VENTILATION
     Dosage: UNK
     Route: 042
     Dates: start: 20200928, end: 20201030
  4. INEXIUM [ESOMEPRAZOLE MAGNESIUM] [Concomitant]
     Active Substance: ESOMEPRAZOLE MAGNESIUM
     Dosage: UNK
     Dates: start: 20200908
  5. CEFOTAXIME [Concomitant]
     Active Substance: CEFOTAXIME SODIUM
     Indication: PNEUMONIA
     Dosage: UNK
     Route: 042
     Dates: start: 20200928, end: 20201004
  6. ESMERON [Concomitant]
     Active Substance: ROCURONIUM BROMIDE
     Dosage: UNK
     Dates: start: 20200908
  7. DIPRIVAN [Concomitant]
     Active Substance: PROPOFOL
     Indication: MECHANICAL VENTILATION
     Dosage: UNK
     Dates: start: 20200928, end: 20201030
  8. KETAMINE [Concomitant]
     Active Substance: KETAMINE
     Dosage: UNK
     Dates: start: 20200908
  9. MOVICOL READY TO TAKE [Concomitant]
     Indication: CONSTIPATION
     Dosage: UNK
     Dates: start: 20200928
  10. REMDESIVIR. [Suspect]
     Active Substance: REMDESIVIR
     Indication: COVID-19
     Dosage: 100 MG, QD
     Route: 042
     Dates: start: 20200908, end: 20200916
  11. LASILIX [FUROSEMIDE] [Concomitant]
     Active Substance: FUROSEMIDE
     Indication: CARDIOMYOPATHY
     Dosage: 20 MG, QD
     Route: 042
     Dates: start: 20200928
  12. MIDAZOLAM. [Concomitant]
     Active Substance: MIDAZOLAM
     Indication: MECHANICAL VENTILATION
     Dosage: UNK
     Route: 042
     Dates: start: 20200928, end: 20200929
  13. DEXAMETHAZONE [Concomitant]
     Active Substance: DEXAMETHASONE
     Dosage: UNK
     Dates: start: 20200907

REACTIONS (2)
  - Acute respiratory distress syndrome [Recovered/Resolved]
  - Hypotension [Not Recovered/Not Resolved]

NARRATIVE: CASE EVENT DATE: 20200910
